FAERS Safety Report 18148998 (Version 1)
Quarter: 2020Q3

REPORT INFORMATION
  Report Type: Spontaneous
  Country: US (occurrence: US)
  Receive Date: 20200813
  Receipt Date: 20200813
  Transmission Date: 20201103
  Serious: Yes (Other)
  Sender: FDA-Public Use
  Company Number: US-NAPPMUNDI-USA-2020-0155832

PATIENT
  Sex: Male

DRUGS (7)
  1. OXYCONTIN [Suspect]
     Active Substance: OXYCODONE HYDROCHLORIDE
     Indication: PRODUCT USED FOR UNKNOWN INDICATION
     Dosage: 60 MG, Q4H
     Route: 048
  2. OXYCONTIN [Suspect]
     Active Substance: OXYCODONE HYDROCHLORIDE
     Dosage: 60 MG, Q4H
     Route: 048
     Dates: start: 20160114
  3. PERCOCET                           /00446701/ [Suspect]
     Active Substance: ACETAMINOPHEN\OXYCODONE HYDROCHLORIDE\OXYCODONE TEREPHTHALATE
     Indication: PRODUCT USED FOR UNKNOWN INDICATION
     Dosage: 10/325 MG
     Route: 065
  4. OXYCODONE HYDROCHLORIDE (SIMILAR TO NDA 22?272) [Suspect]
     Active Substance: OXYCODONE HYDROCHLORIDE
     Indication: PRODUCT USED FOR UNKNOWN INDICATION
     Dosage: UNK
     Route: 065
  5. OXYCODONE/ ACETAMINOPHEN TABLETS [Suspect]
     Active Substance: ACETAMINOPHEN\OXYCODONE HYDROCHLORIDE
     Indication: PRODUCT USED FOR UNKNOWN INDICATION
     Dosage: 10MG/32
     Route: 048
  6. OXYMORPHONE [Suspect]
     Active Substance: OXYMORPHONE
     Indication: PRODUCT USED FOR UNKNOWN INDICATION
     Dosage: UNK
     Route: 065
  7. AMPHETAMINE [Suspect]
     Active Substance: AMPHETAMINE
     Indication: PRODUCT USED FOR UNKNOWN INDICATION
     Dosage: UNKNOWN
     Route: 065

REACTIONS (45)
  - Spinal stenosis [Unknown]
  - Haematuria [Unknown]
  - Cardiovascular disorder [Unknown]
  - Mean cell haemoglobin concentration decreased [Unknown]
  - Blood chloride increased [Unknown]
  - Hyperlipidaemia [Unknown]
  - Blood thyroid stimulating hormone decreased [Unknown]
  - Blood creatine phosphokinase increased [Unknown]
  - Hypertension [Unknown]
  - Intervertebral disc degeneration [Unknown]
  - Lymphocyte percentage decreased [Unknown]
  - Red blood cell sedimentation rate increased [Unknown]
  - C-reactive protein increased [Unknown]
  - Aspartate aminotransferase decreased [Unknown]
  - Drug dependence [Unknown]
  - Gastrointestinal disorder [Unknown]
  - Nicotine dependence [Unknown]
  - Platelet count decreased [Unknown]
  - Neutrophil count increased [Unknown]
  - Blood glucose increased [Unknown]
  - Cerebral infarction [Unknown]
  - Carotid artery occlusion [Unknown]
  - Blood pressure diastolic decreased [Unknown]
  - Blood triglycerides increased [Unknown]
  - Mobility decreased [Unknown]
  - Very low density lipoprotein increased [Unknown]
  - Vitamin D decreased [Unknown]
  - White blood cell count increased [Unknown]
  - Glycosylated haemoglobin increased [Unknown]
  - Headache [Unknown]
  - Drug abuse [Unknown]
  - Red cell distribution width increased [Unknown]
  - Urinary sediment present [Unknown]
  - Neutrophil percentage increased [Unknown]
  - Tri-iodothyronine increased [Unknown]
  - Blood lactate dehydrogenase decreased [Unknown]
  - Human epidermal growth factor receptor decreased [Unknown]
  - Constipation [Unknown]
  - Atrial fibrillation [Unknown]
  - Vertigo [Unknown]
  - Arthralgia [Unknown]
  - Blood sodium increased [Unknown]
  - Anion gap decreased [Unknown]
  - Nervousness [Unknown]
  - Dizziness [Unknown]
